FAERS Safety Report 8051571-8 (Version None)
Quarter: 2012Q1

REPORT INFORMATION
  Report Type: 
  Country: None (occurrence: None)
  Receive Date: 20120117
  Receipt Date: 20120104
  Transmission Date: 20120608
  Serious: Yes (Hospitalization)
  Sender: FDA-Public Use
  Company Number: NL-MYLANLABS-2012S1000509

PATIENT
  Age: 86 Year
  Sex: Female

DRUGS (2)
  1. HYDROCHLOROTHIAZIDE [Suspect]
     Route: 065
  2. DESMOPRESSIN ACETATE [Suspect]
     Indication: NOCTURIA
     Route: 065

REACTIONS (3)
  - HYPONATRAEMIA [None]
  - NERVOUS SYSTEM DISORDER [None]
  - APRAXIA [None]
